FAERS Safety Report 6215506-2 (Version None)
Quarter: 2009Q2

REPORT INFORMATION
  Report Type: 
  Country: None (occurrence: None)
  Receive Date: 20090603
  Receipt Date: 20090527
  Transmission Date: 20091009
  Serious: Yes (Other)
  Sender: FDA-Public Use
  Company Number: 2008JP002221

PATIENT
  Age: 75 Year
  Sex: Male

DRUGS (3)
  1. VESICARE [Suspect]
     Indication: HYPERTONIC BLADDER
     Dosage: 5 MG, UID/QD, ORAL; 2.5 MG, UID/QD, ORAL
     Route: 048
     Dates: start: 20071002, end: 20071009
  2. VESICARE [Suspect]
     Indication: HYPERTONIC BLADDER
     Dosage: 5 MG, UID/QD, ORAL; 2.5 MG, UID/QD, ORAL
     Route: 048
     Dates: start: 20071017, end: 20071031
  3. FLIVAS(NAFTOPIDIL) ORODISPERSIBLE CR TABLET [Suspect]
     Dosage: 50 MG, ORAL
     Route: 048
     Dates: start: 20071002, end: 20071009

REACTIONS (2)
  - DIZZINESS [None]
  - RENAL FAILURE [None]
